FAERS Safety Report 13926484 (Version 1)
Quarter: 2017Q3

REPORT INFORMATION
  Report Type: Spontaneous
  Country: US (occurrence: None)
  Receive Date: 20170831
  Receipt Date: 20170831
  Transmission Date: 20171127
  Serious: Yes (Death)
  Sender: FDA-Public Use
  Company Number: None

PATIENT
  Age: 54 Year
  Sex: Male
  Weight: 63.6 kg

DRUGS (1)
  1. MEMANTINE HYDROCHLORIDE. [Suspect]
     Active Substance: MEMANTINE HYDROCHLORIDE
     Dates: end: 20170819

REACTIONS (6)
  - Dyspnoea [None]
  - Painful respiration [None]
  - Lung neoplasm malignant [None]
  - Unresponsive to stimuli [None]
  - Terminal state [None]
  - Respiratory failure [None]

NARRATIVE: CASE EVENT DATE: 20170820
